FAERS Safety Report 9652162 (Version 1)
Quarter: 2013Q4

REPORT INFORMATION
  Report Type: Spontaneous
  Country: ES (occurrence: None)
  Receive Date: 20131025
  Receipt Date: 20131025
  Transmission Date: 20140711
  Serious: Yes (Other)
  Sender: FDA-Public Use
  Company Number: E2B_7244291

PATIENT
  Age: 47 Year
  Sex: Female

DRUGS (2)
  1. EUTHYROX [Suspect]
     Indication: HYPOTHYROIDISM
     Dosage: 25 MCG CADA 24 HORAS
     Dates: start: 20130529, end: 20130601
  2. BIO THREE [Suspect]
     Indication: WEIGHT CONTROL
     Route: 048
     Dates: start: 20130601, end: 20130703

REACTIONS (1)
  - Weight decreased [None]
